FAERS Safety Report 17853296 (Version 3)
Quarter: 2020Q3

REPORT INFORMATION
  Report Type: Report from Study
  Country: US (occurrence: US)
  Receive Date: 20200603
  Receipt Date: 20200907
  Transmission Date: 20201103
  Serious: No
  Sender: FDA-Public Use
  Company Number: NVSC2020US152596

PATIENT
  Sex: Male

DRUGS (2)
  1. COSENTYX [Suspect]
     Active Substance: SECUKINUMAB
     Dosage: 300 MG, QMO
     Route: 058
     Dates: start: 20200826
  2. COSENTYX [Suspect]
     Active Substance: SECUKINUMAB
     Indication: PSORIASIS
     Dosage: 300 MG, QW (300MG EVERY WEEKLY X5 WEEKS THEN 300MG EVERY 4 WEEKS)
     Route: 058
     Dates: start: 20200319

REACTIONS (4)
  - Therapeutic product effect incomplete [Unknown]
  - Skin haemorrhage [Unknown]
  - Limb injury [Unknown]
  - Skin fissures [Unknown]
